FAERS Safety Report 18678696 (Version 5)
Quarter: 2021Q4

REPORT INFORMATION
  Report Type: Report from Study
  Country: US (occurrence: US)
  Receive Date: 20201229
  Receipt Date: 20211012
  Transmission Date: 20220303
  Serious: Yes (Other)
  Sender: FDA-Public Use
  Company Number: US-CLOVIS-CLO-2020-001957

PATIENT
  Age: 74 Year
  Sex: Female

DRUGS (3)
  1. RUBRACA [Suspect]
     Active Substance: RUCAPARIB CAMSYLATE
     Indication: Ovarian cancer
     Dosage: 600 MG, BID
     Route: 048
     Dates: start: 202009, end: 20201028
  2. RUBRACA [Suspect]
     Active Substance: RUCAPARIB CAMSYLATE
     Dosage: 300 MILLIGRAM, QD
     Route: 048
     Dates: start: 20210301
  3. RUBRACA [Suspect]
     Active Substance: RUCAPARIB CAMSYLATE
     Dosage: 300 MILLIGRAM, QD
     Route: 048
     Dates: start: 202010

REACTIONS (14)
  - Neuropathy peripheral [Not Recovered/Not Resolved]
  - Cataract [Unknown]
  - Haemoglobin decreased [Not Recovered/Not Resolved]
  - Memory impairment [Unknown]
  - Full blood count abnormal [Unknown]
  - Fall [Unknown]
  - Arthralgia [Unknown]
  - Irritability [Unknown]
  - Stomatitis [Recovered/Resolved]
  - Constipation [Unknown]
  - Platelet count decreased [Unknown]
  - Nausea [Unknown]
  - Fatigue [Not Recovered/Not Resolved]
  - Product dose omission in error [Unknown]

NARRATIVE: CASE EVENT DATE: 20200101
